FAERS Safety Report 7819489-0 (Version None)
Quarter: 2011Q4

REPORT INFORMATION
  Report Type: 
  Country: None (occurrence: None)
  Receive Date: 20111018
  Receipt Date: 20110307
  Transmission Date: 20120403
  Serious: No
  Sender: FDA-Public Use
  Company Number: US-ASTRAZENECA-2011SE13011

PATIENT
  Sex: Female

DRUGS (4)
  1. SYMBICORT [Suspect]
     Indication: ASTHMA
     Dosage: 160/4.5 MCG 2 PUFFS BID
     Route: 055
     Dates: start: 20110101
  2. ALBUTEROL [Concomitant]
  3. SYMBICORT [Suspect]
     Indication: CHRONIC OBSTRUCTIVE PULMONARY DISEASE
     Dosage: 160/4.5 MCG 2 PUFFS BID
     Route: 055
     Dates: start: 20110101
  4. COMBIVENT [Concomitant]

REACTIONS (1)
  - DYSPNOEA [None]
